FAERS Safety Report 23040504 (Version 1)
Quarter: 2023Q4

REPORT INFORMATION
  Report Type: Other
  Country: US (occurrence: US)
  Receive Date: 20231006
  Receipt Date: 20231006
  Transmission Date: 20240109
  Serious: No
  Sender: FDA-Public Use
  Company Number: US-TRAVERE-2023TVT00433

PATIENT
  Age: 5 Year
  Sex: Female

DRUGS (1)
  1. CHOLBAM [Suspect]
     Active Substance: CHOLIC ACID
     Indication: Metabolic disorder
     Dosage: 50 MG AS DIRECTED
     Route: 048
     Dates: start: 20230804

REACTIONS (2)
  - Abdominal discomfort [Unknown]
  - Gastric haemorrhage [Recovered/Resolved]
